FAERS Safety Report 17263843 (Version 5)
Quarter: 2021Q1

REPORT INFORMATION
  Report Type: Spontaneous
  Country: US (occurrence: US)
  Receive Date: 20200113
  Receipt Date: 20210107
  Transmission Date: 20210419
  Serious: Yes (Hospitalization, Other)
  Sender: FDA-Public Use
  Company Number: US-PFIZER INC-2020014686

PATIENT
  Age: 66 Year
  Sex: Male
  Weight: 79.37 kg

DRUGS (2)
  1. INLYTA [Suspect]
     Active Substance: AXITINIB
     Indication: METASTATIC RENAL CELL CARCINOMA
     Dosage: 1 MG, UNK
  2. INLYTA [Suspect]
     Active Substance: AXITINIB
     Dosage: 3 MG, TWICE DAILY
     Dates: start: 202001

REACTIONS (8)
  - Hyperbilirubinaemia [Recovering/Resolving]
  - Hepatic function abnormal [Recovering/Resolving]
  - Laboratory test abnormal [Recovering/Resolving]
  - Renal failure [Not Recovered/Not Resolved]
  - Illness [Not Recovered/Not Resolved]
  - Drain site complication [Unknown]
  - Weight decreased [Not Recovered/Not Resolved]
  - Blood pressure decreased [Recovered/Resolved]

NARRATIVE: CASE EVENT DATE: 201910
